FAERS Safety Report 10184245 (Version 1)
Quarter: 2014Q2

REPORT INFORMATION
  Report Type: Spontaneous
  Country: US (occurrence: US)
  Receive Date: 20140520
  Receipt Date: 20140520
  Transmission Date: 20141212
  Serious: No
  Sender: FDA-Public Use
  Company Number: US-ASTRAZENECA-2014SE14758

PATIENT
  Sex: Female

DRUGS (2)
  1. RHINOCORT AQUA [Suspect]
     Dosage: 32 MCG, 2 SPRAYS PER NOSTRIL BID
     Route: 045
     Dates: start: 2004
  2. RHINOCORT AQUA [Suspect]
     Dosage: 32 MCG, 2 SPRAYS PER NOSTRIL BID
     Route: 045

REACTIONS (2)
  - Hearing impaired [Unknown]
  - Off label use [Unknown]
